FAERS Safety Report 13096505 (Version 1)
Quarter: 2017Q1

REPORT INFORMATION
  Report Type: Spontaneous
  Country: BR (occurrence: BR)
  Receive Date: 20170109
  Receipt Date: 20170109
  Transmission Date: 20170428
  Serious: Yes (Other)
  Sender: FDA-Public Use
  Company Number: BR-009507513-1701BRA002728

PATIENT
  Sex: Female
  Weight: 58 kg

DRUGS (2)
  1. MERCILON  CONTI [Suspect]
     Active Substance: DESOGESTREL\ETHINYL ESTRADIOL
     Indication: CONTRACEPTION
     Dosage: 1TABLET, QD
     Route: 048
     Dates: start: 2004
  2. MERCILON  CONTI [Suspect]
     Active Substance: DESOGESTREL\ETHINYL ESTRADIOL
     Dosage: UNK UNK, QD
     Route: 048
     Dates: start: 20170101

REACTIONS (3)
  - Ear infection [Recovering/Resolving]
  - Fall [Recovered/Resolved]
  - Upper limb fracture [Recovered/Resolved]

NARRATIVE: CASE EVENT DATE: 2013
